FAERS Safety Report 10477172 (Version 2)
Quarter: 2014Q3

REPORT INFORMATION
  Report Type: Report from Study
  Country: PL (occurrence: PL)
  Receive Date: 20140926
  Receipt Date: 20140926
  Transmission Date: 20150326
  Serious: Yes (Hospitalization)
  Sender: FDA-Public Use
  Company Number: PL-BIOGENIDEC-2014BI003237

PATIENT
  Age: 33 Year
  Sex: Female
  Weight: 61 kg

DRUGS (7)
  1. NUVARING [Concomitant]
     Active Substance: ETHINYL ESTRADIOL\ETONOGESTREL
     Indication: CONTRACEPTION
     Route: 048
     Dates: start: 20130721
  2. AMERTIL [Concomitant]
     Indication: DERMATITIS CONTACT
     Route: 048
     Dates: start: 20090417
  3. VITAMIN C [Concomitant]
     Active Substance: ASCORBIC ACID
     Indication: ROUTINE HEALTH MAINTENANCE
     Route: 048
     Dates: start: 20100706
  4. BIIB017 [Suspect]
     Active Substance: PEGINTERFERON BETA-1A
     Indication: MULTIPLE SCLEROSIS
     Route: 058
     Dates: start: 20120601
  5. DICLAC [Concomitant]
     Active Substance: DICLOFENAC POTASSIUM
     Indication: HEADACHE
     Route: 048
     Dates: start: 20131108, end: 20131109
  6. TELFEXO [Concomitant]
     Indication: HYPERSENSITIVITY
     Route: 048
     Dates: start: 20120706
  7. MAGNE B6 FORTE [Concomitant]
     Indication: MUSCLE SPASMS
     Route: 048
     Dates: start: 20130706

REACTIONS (1)
  - Colitis [Recovered/Resolved]

NARRATIVE: CASE EVENT DATE: 20131217
